FAERS Safety Report 5637713-X (Version None)
Quarter: 2008Q1

REPORT INFORMATION
  Report Type: 
  Country: None (occurrence: None)
  Receive Date: 20080220
  Receipt Date: 20080211
  Transmission Date: 20080703
  Serious: Yes (Hospitalization)
  Sender: FDA-Public Use
  Company Number: 2008AL000812

PATIENT
  Age: 63 Year
  Sex: Female

DRUGS (7)
  1. CLONAZEPAM [Suspect]
     Dosage: 1 MG; HS; ;PO
     Route: 048
  2. QUETIAPINE FUMARATE [Concomitant]
  3. TRIFLUOPERAZINE [Concomitant]
  4. PALIPERIDONE [Concomitant]
  5. BENZATROPINE [Concomitant]
  6. BROMOCRIPTINE MESYLATE [Concomitant]
  7. DANTROLENE SODIUM [Concomitant]

REACTIONS (4)
  - DELUSION [None]
  - HALLUCINATION [None]
  - NEUROLEPTIC MALIGNANT SYNDROME [None]
  - URINARY TRACT INFECTION [None]
